FAERS Safety Report 10649766 (Version 3)
Quarter: 2015Q3

REPORT INFORMATION
  Report Type: Spontaneous
  Country: US (occurrence: US)
  Receive Date: 20141212
  Receipt Date: 20150708
  Transmission Date: 20151125
  Serious: Yes (Hospitalization)
  Sender: FDA-Public Use
  Company Number: US-BAYER-2014-182505

PATIENT
  Age: 23 Year
  Sex: Female
  Weight: 91 kg

DRUGS (2)
  1. NORGESTIMATE [Concomitant]
     Active Substance: NORGESTIMATE
     Dosage: UNK
     Dates: start: 20130626
  2. MIRENA [Suspect]
     Active Substance: LEVONORGESTREL
     Indication: CONTRACEPTION
     Dosage: 20 MCG/24HR, CONT
     Route: 015
     Dates: start: 20091223, end: 20130725

REACTIONS (5)
  - Tremor [None]
  - Uterine perforation [None]
  - Abdominal pain [None]
  - Injury [None]
  - Device issue [None]

NARRATIVE: CASE EVENT DATE: 201001
